FAERS Safety Report 13423241 (Version 3)
Quarter: 2017Q3

REPORT INFORMATION
  Report Type: Report from Study
  Country: CA (occurrence: CA)
  Receive Date: 20170410
  Receipt Date: 20170724
  Transmission Date: 20171127
  Serious: Yes (Hospitalization, Other)
  Sender: FDA-Public Use
  Company Number: CA-AMGEN-CANSL2017051273

PATIENT
  Age: 80 Year
  Sex: Female

DRUGS (11)
  1. FOLIC [Concomitant]
     Active Substance: FOLIC ACID
     Dosage: 5 MG, UNK
  2. BISOPROLOL [Concomitant]
     Active Substance: BISOPROLOL
     Dosage: UNK UNK, BID
  3. VITAMIN D [Concomitant]
     Active Substance: CHOLECALCIFEROL
  4. PROLIA [Suspect]
     Active Substance: DENOSUMAB
     Indication: PRODUCT USED FOR UNKNOWN INDICATION
     Dosage: UNK
     Route: 065
     Dates: start: 20160503
  5. CALCIUM [Concomitant]
     Active Substance: CALCIUM
     Dosage: 400 MG, UNK
  6. RAMIPRIL. [Concomitant]
     Active Substance: RAMIPRIL
     Dosage: UNK
  7. PANTOLOC [Concomitant]
     Active Substance: PANTOPRAZOLE SODIUM
     Dosage: UNK
  8. TERZOLIN [Concomitant]
     Dosage: UNK
  9. FUROSEMIDE. [Concomitant]
     Active Substance: FUROSEMIDE
     Dosage: 20 MG, UNK
  10. COUMADIN [Concomitant]
     Active Substance: WARFARIN SODIUM
     Dosage: 5 MG, UNK
  11. PANTOPRAZOLE [Concomitant]
     Active Substance: PANTOPRAZOLE

REACTIONS (6)
  - Intestinal haemorrhage [Recovered/Resolved]
  - Urinary tract infection [Unknown]
  - Anaemia [Not Recovered/Not Resolved]
  - Anal haemorrhage [Unknown]
  - Gait disturbance [Unknown]
  - Small intestinal perforation [Recovered/Resolved]
